FAERS Safety Report 6166341-5 (Version None)
Quarter: 2009Q2

REPORT INFORMATION
  Report Type: 
  Country: None (occurrence: None)
  Receive Date: 20090422
  Receipt Date: 20090422
  Transmission Date: 20091009
  Serious: Yes (Other)
  Sender: FDA-Public Use
  Company Number: None

PATIENT
  Sex: Female
  Weight: 85.45 kg

DRUGS (13)
  1. PRAVASTATIN [Suspect]
     Dosage: 20MG TABLET 20 MG QHS ORAL
     Route: 048
     Dates: start: 20090306, end: 20090421
  2. ASPIRIN [Concomitant]
  3. ATENOLOL [Concomitant]
  4. CALCIUM + D [Concomitant]
  5. FAMVIR [Concomitant]
  6. FUROSEMIDE [Concomitant]
  7. GARLIC TABLET [Concomitant]
  8. LEVOTHYROXINE SODIUM [Concomitant]
  9. LIDODERM [Concomitant]
  10. LISINOPRIL [Concomitant]
  11. MULTI-VITAMINS [Concomitant]
  12. NIFEDIPINE [Concomitant]
  13. NORTRIPTYLINE HCL [Concomitant]

REACTIONS (1)
  - MUSCLE SPASMS [None]
